FAERS Safety Report 21848268 (Version 1)
Quarter: 2023Q1

REPORT INFORMATION
  Report Type: Spontaneous
  Country: US (occurrence: None)
  Receive Date: 20230110
  Receipt Date: 20230110
  Transmission Date: 20230418
  Serious: Yes (Hospitalization)
  Sender: FDA-Public Use
  Company Number: None

PATIENT
  Age: 77 Year
  Sex: Male

DRUGS (13)
  1. NIVOLUMAB [Suspect]
     Active Substance: NIVOLUMAB
     Indication: Bladder cancer
  2. cefpopxime [Concomitant]
  3. AMLODIPINE [Concomitant]
     Active Substance: AMLODIPINE BESYLATE
  4. ATORVASTATIN [Concomitant]
     Active Substance: ATORVASTATIN
  5. ALPRAZOLAM [Concomitant]
     Active Substance: ALPRAZOLAM
  6. ZOLPIDEM [Concomitant]
     Active Substance: ZOLPIDEM TARTRATE
  7. TAMSULOSIN [Concomitant]
     Active Substance: TAMSULOSIN
  8. LEVOTHYROXINE [Concomitant]
     Active Substance: LEVOTHYROXINE
  9. NORCO [Concomitant]
     Active Substance: ACETAMINOPHEN\HYDROCODONE BITARTRATE
  10. CALCIUM POLYCARBOPHIL [Concomitant]
     Active Substance: CALCIUM POLYCARBOPHIL
  11. MAGNESIUM CITRATE [Concomitant]
     Active Substance: MAGNESIUM CITRATE
  12. ASPIRIN [Concomitant]
     Active Substance: ASPIRIN
  13. VITAMINS [Concomitant]
     Active Substance: VITAMINS

REACTIONS (5)
  - Eyelid ptosis [None]
  - Asthenia [None]
  - Arthralgia [None]
  - Muscular weakness [None]
  - Myositis [None]
